FAERS Safety Report 15465604 (Version 2)
Quarter: 2018Q4

REPORT INFORMATION
  Report Type: Spontaneous
  Country: AR (occurrence: AR)
  Receive Date: 20181004
  Receipt Date: 20181017
  Transmission Date: 20190204
  Serious: Yes (Other)
  Sender: FDA-Public Use
  Company Number: PHHY2018AR114982

PATIENT
  Sex: Female

DRUGS (5)
  1. ALCON LAGRIMA II (ALC) (DEXTRAN 70\HYPROMELLOSE) [Suspect]
     Active Substance: DEXTRAN 70\HYPROMELLOSES
     Indication: SJOGREN^S SYNDROME
     Dosage: UNK UNK, QID
     Route: 047
     Dates: end: 201808
  2. PANTOPRAZOLE [Concomitant]
     Active Substance: PANTOPRAZOLE
     Indication: PROPHYLAXIS
     Route: 065
  3. AMLODIPINE [Concomitant]
     Active Substance: AMLODIPINE BESYLATE
     Indication: PRODUCT USED FOR UNKNOWN INDICATION
     Route: 065
  4. CARVEDILOL. [Concomitant]
     Active Substance: CARVEDILOL
     Indication: PRODUCT USED FOR UNKNOWN INDICATION
     Route: 065
  5. DICLOFENAC [Concomitant]
     Active Substance: DICLOFENAC
     Indication: PAIN
     Route: 065

REACTIONS (13)
  - Erythema [Recovering/Resolving]
  - Ocular hyperaemia [Unknown]
  - Hypersensitivity [Recovering/Resolving]
  - Vision blurred [Unknown]
  - Dyspnoea [Recovering/Resolving]
  - Mouth swelling [Recovering/Resolving]
  - Swelling of eyelid [Unknown]
  - Swelling face [Recovering/Resolving]
  - Eye swelling [Recovering/Resolving]
  - Nasal oedema [Recovering/Resolving]
  - Malaise [Recovering/Resolving]
  - Pruritus [Unknown]
  - Ocular discomfort [Recovered/Resolved]

NARRATIVE: CASE EVENT DATE: 201808
